FAERS Safety Report 8224566-9 (Version None)
Quarter: 2012Q1

REPORT INFORMATION
  Report Type: 
  Country: None (occurrence: None)
  Receive Date: 20120321
  Receipt Date: 20120315
  Transmission Date: 20120608
  Serious: Yes (Other)
  Sender: FDA-Public Use
  Company Number: US-BAYER-200940692NA

PATIENT
  Age: 40 Year
  Sex: Female
  Weight: 37 kg

DRUGS (43)
  1. EPINEPHRINE [Concomitant]
     Dosage: 1 MG, UNK
     Route: 042
     Dates: start: 20000705
  2. DESMOPRESSIN ACETATE [Concomitant]
     Dosage: 15 MCG, UNK
     Route: 042
     Dates: start: 20000601
  3. PROTAMINE SULFATE [Concomitant]
     Dosage: 500 MG, UNK
     Route: 042
     Dates: start: 20000705
  4. RED BLOOD CELLS [Concomitant]
     Dosage: 54 U, UNK
     Dates: start: 20000601, end: 20000729
  5. EPINEPHRINE [Concomitant]
     Dosage: 2 MG/250 ML, UNK
     Route: 042
     Dates: start: 20000601
  6. DIAZEPAM [Concomitant]
     Dosage: 30 MG, UNK
     Route: 042
     Dates: start: 20000705
  7. LIDOCAINE [Concomitant]
     Dosage: 100 MG, UNK
     Route: 042
     Dates: start: 20000705
  8. CRYOPRECIPITATES [Concomitant]
     Dosage: 10 U, UNK
     Dates: start: 20000601, end: 20000629
  9. FENTANYL-100 [Concomitant]
     Dosage: UNK
     Dates: start: 20000801, end: 20000801
  10. HEPARIN SODIUM [Concomitant]
     Dosage: 500 ML, UNK
     Route: 042
     Dates: start: 20000601
  11. DIGOXIN [Concomitant]
     Dosage: 0.5 MG, UNK
     Route: 042
     Dates: start: 20000601
  12. DIGOXIN [Concomitant]
     Dosage: 0.5 MG, UNK
     Route: 042
  13. ACYCLOVIR [Concomitant]
     Dosage: 500 MG, UNK
     Dates: start: 20000611
  14. CARDIOPLEGIA [Concomitant]
     Dosage: UNK
     Dates: start: 20000801, end: 20000801
  15. DOPAMINE HCL [Concomitant]
     Dosage: UNK
     Dates: start: 20000801, end: 20000801
  16. AMICAR [Concomitant]
     Dosage: 2 GM LOAD FOLLOWED BY 1 GM/HR CONTINUOUS
     Dates: start: 20000801, end: 20000801
  17. PROCAINAMIDE [Concomitant]
     Dosage: 100 MG, UNK
     Route: 042
     Dates: start: 20000601
  18. PROTAMINE SULFATE [Concomitant]
     Dosage: UNK
     Dates: start: 20000801, end: 20000801
  19. MANNITOL [Concomitant]
     Dosage: 250MG PUMP PRIME
     Dates: start: 20000801, end: 20000801
  20. RED BLOOD CELLS [Concomitant]
     Dosage: 500 ML, UNK
     Route: 042
     Dates: start: 20000705
  21. TRASYLOL [Suspect]
     Indication: MITRAL VALVE REPLACEMENT
     Dosage: 1 ML TEST
     Route: 042
     Dates: start: 20000801
  22. AMICAR [Concomitant]
     Dosage: 5 G, X2
     Route: 042
     Dates: start: 20000705
  23. MORPHINE [Concomitant]
     Dosage: 10 MG, UNK
     Route: 042
     Dates: start: 20000705
  24. HEPARIN [Concomitant]
     Dosage: 10000 U, UNK
     Route: 042
     Dates: start: 20000705
  25. PLATELETS [Concomitant]
     Dosage: 2 U, UNK
     Dates: start: 20000601, end: 20000729
  26. TRASYLOL [Suspect]
     Indication: AORTIC VALVE REPLACEMENT
     Dosage: 12.5 MG/HR CONTINUOUS
     Dates: start: 20000801
  27. EPINEPHRINE [Concomitant]
     Dosage: 2 MG/250 ML, UNK
     Route: 042
     Dates: start: 20000705
  28. CAPTOPRIL [Concomitant]
     Dosage: 25 MG, UNK
     Dates: start: 20000530
  29. VANCOMYCIN [Concomitant]
     Dosage: 1 G, UNK
     Dates: start: 20000531
  30. TRASYLOL [Suspect]
     Indication: AORTIC VALVE REPAIR
  31. AMICAR [Concomitant]
     Dosage: 5 G, X2
     Route: 042
     Dates: start: 20000601
  32. MORPHINE [Concomitant]
     Dosage: 0.1 MG/KG, UNK
     Route: 030
     Dates: start: 20000601
  33. PHENYLEPHRINE HCL [Concomitant]
     Dosage: 3 MG/30 ML, UNK
     Route: 042
     Dates: start: 20000601
  34. VERAPAMIL [Concomitant]
     Dosage: 5 MG, UNK
     Route: 042
     Dates: start: 20000601
  35. HEXTEND [Concomitant]
     Dosage: 500 ML, UNK
     Route: 042
     Dates: start: 20000601
  36. MANNITOL [Concomitant]
     Dosage: 25 G, UNK
     Route: 042
     Dates: start: 20000705
  37. LASIX [Concomitant]
     Dosage: 60 MG, UNK
     Route: 042
     Dates: start: 20000731
  38. LASIX [Concomitant]
     Dosage: UNK
     Dates: start: 20000801, end: 20000801
  39. HEPARIN [Concomitant]
     Dosage: 5000 UNITS PUMP PRIME
     Dates: start: 20000801, end: 20000801
  40. FRESH FROZEN PLASMA [Concomitant]
     Dosage: 26 U, UNK
     Dates: start: 20000601, end: 20000729
  41. ASPIRIN [Concomitant]
     Dosage: 81 MG, UNK
     Dates: start: 20000621
  42. MAGNESIUM SULFATE [Concomitant]
     Dosage: UNK
     Dates: start: 20000801, end: 20000801
  43. NITROGLYCERIN [Concomitant]
     Dosage: UNK
     Dates: start: 20000801, end: 20000801

REACTIONS (13)
  - UNEVALUABLE EVENT [None]
  - DEPRESSION [None]
  - RENAL FAILURE [None]
  - RENAL INJURY [None]
  - EMOTIONAL DISTRESS [None]
  - ANXIETY [None]
  - RENAL IMPAIRMENT [None]
  - STRESS [None]
  - INJURY [None]
  - ANHEDONIA [None]
  - PSYCHOLOGICAL TRAUMA [None]
  - FEAR [None]
  - PAIN [None]
